FAERS Safety Report 4826004-2 (Version None)
Quarter: 2005Q4

REPORT INFORMATION
  Report Type: 
  Country: None (occurrence: None)
  Receive Date: 20051111
  Receipt Date: 20050803
  Transmission Date: 20060501
  Serious: Yes (Hospitalization)
  Sender: FDA-Public Use
  Company Number: US-MERCK-0508USA01270

PATIENT
  Age: 49 Year
  Sex: Male
  Weight: 126 kg

DRUGS (24)
  1. VIOXX [Suspect]
     Indication: BACK PAIN
     Route: 048
     Dates: start: 20010130, end: 20040101
  2. VIOXX [Suspect]
     Indication: ARTHRALGIA
     Route: 048
     Dates: start: 20010130, end: 20040101
  3. ASPIRIN [Concomitant]
     Route: 065
  4. HUMULIN 70/30 [Concomitant]
     Route: 065
  5. AVANDIA [Concomitant]
     Route: 065
  6. CLARITIN-D [Concomitant]
     Route: 065
  7. TOPROL-XL [Concomitant]
     Route: 048
     Dates: start: 20000101
  8. IBUPROFEN [Concomitant]
     Route: 065
  9. PLAVIX [Concomitant]
     Route: 065
  10. VIAGRA [Concomitant]
     Route: 065
  11. AMOXICILLIN [Concomitant]
     Route: 065
  12. ACETAMINOPHEN AND CODEINE [Concomitant]
     Route: 065
  13. ALLEGRA [Concomitant]
     Route: 065
  14. MEVACOR [Concomitant]
     Route: 048
  15. NIASPAN [Concomitant]
     Route: 065
  16. ZITHROMAX [Concomitant]
     Route: 065
  17. NITROLINGUAL [Concomitant]
     Route: 065
  18. AMBIEN [Concomitant]
     Route: 065
  19. HUMALOG [Concomitant]
     Route: 065
  20. LANTUS [Concomitant]
     Route: 065
  21. ISOSORBIDE DINITRATE [Concomitant]
     Route: 065
  22. NABUMETONE [Concomitant]
     Route: 065
  23. [THERAPY UNSPECIFIED] [Concomitant]
     Route: 065
  24. BIAXIN [Concomitant]
     Route: 065

REACTIONS (6)
  - ANXIETY [None]
  - BLOOD TRIGLYCERIDES INCREASED [None]
  - CHEST PAIN [None]
  - MYOCARDIAL INFARCTION [None]
  - OEDEMA PERIPHERAL [None]
  - PANIC ATTACK [None]
